FAERS Safety Report 7288921-6 (Version None)
Quarter: 2011Q1

REPORT INFORMATION
  Report Type: 
  Country: None (occurrence: None)
  Receive Date: 20110201
  Receipt Date: 20110120
  Transmission Date: 20110831
  Serious: Yes (Death)
  Sender: FDA-Public Use
  Company Number: MC201100035

PATIENT
  Age: 77 Year
  Sex: Female

DRUGS (4)
  1. ASPIRIN [Concomitant]
  2. PLAVIX [Concomitant]
  3. ANGIOMAX [Suspect]
     Indication: PERCUTANEOUS CORONARY INTERVENTION
     Dosage: 0.75 MG/KG, BOLUS, INTRAVENOUS ; 1 MG/KG, HR, INTRAVENOUS
     Route: 042
     Dates: start: 20101225
  4. ANGIOMAX [Suspect]
     Indication: PERCUTANEOUS CORONARY INTERVENTION
     Dosage: 0.75 MG/KG, BOLUS, INTRAVENOUS ; 1 MG/KG, HR, INTRAVENOUS
     Route: 042
     Dates: start: 20101225, end: 20101225

REACTIONS (4)
  - DEVICE OCCLUSION [None]
  - CREATININE RENAL CLEARANCE DECREASED [None]
  - CARDIAC ARREST [None]
  - THROMBOSIS IN DEVICE [None]
